FAERS Safety Report 5660122-4 (Version None)
Quarter: 2008Q1

REPORT INFORMATION
  Report Type: 
  Country: None (occurrence: None)
  Receive Date: 20080311
  Receipt Date: 20080227
  Transmission Date: 20080703
  Serious: Yes (Hospitalization)
  Sender: FDA-Public Use
  Company Number: NL-AMGEN-US264411

PATIENT
  Sex: Male

DRUGS (11)
  1. ENBREL [Suspect]
     Indication: RHEUMATOID ARTHRITIS
     Dates: start: 20070201, end: 20071201
  2. DICLOFENAC SODIUM [Concomitant]
     Dosage: 100 MG 1 TO 2 TIMES PER DAY AS NECESSARY
  3. TRAMADOL HCL [Concomitant]
  4. ASCAL CARDIO [Concomitant]
  5. FOSAMAX [Concomitant]
  6. OMEPRAZOLE [Concomitant]
  7. METOPROLOL SUCCINATE [Concomitant]
  8. CALCICHEW [Concomitant]
  9. ELOCON [Concomitant]
     Dosage: 1MG 1 TIME PER DAY
  10. FENTANYL [Concomitant]
  11. SIMVASTATIN [Concomitant]

REACTIONS (8)
  - DYSPNOEA [None]
  - HYPERSENSITIVITY [None]
  - INCREASED UPPER AIRWAY SECRETION [None]
  - INFLUENZA LIKE ILLNESS [None]
  - PNEUMONIA [None]
  - PYREXIA [None]
  - UPPER RESPIRATORY TRACT INFECTION [None]
  - VOMITING [None]
